FAERS Safety Report 6998991-8 (Version None)
Quarter: 2010Q3

REPORT INFORMATION
  Report Type: 
  Country: None (occurrence: None)
  Receive Date: 20100920
  Receipt Date: 20100504
  Transmission Date: 20110219
  Serious: No
  Sender: FDA-Public Use
  Company Number: US-ASTRAZENECA-2010SE07348

PATIENT
  Age: 81 Year
  Sex: Male
  Weight: 62.6 kg

DRUGS (4)
  1. SEROQUEL XR [Suspect]
     Indication: INSOMNIA
     Route: 048
     Dates: start: 20090401, end: 20090401
  2. SEROQUEL XR [Suspect]
     Route: 048
     Dates: start: 20090501, end: 20090801
  3. LITHIUM CARBONATE [Concomitant]
     Route: 065
  4. WELLBUTRIN [Concomitant]
     Route: 065

REACTIONS (6)
  - DECREASED APPETITE [None]
  - DYSPEPSIA [None]
  - FEELING ABNORMAL [None]
  - POLLAKIURIA [None]
  - SOMNOLENCE [None]
  - TREATMENT NONCOMPLIANCE [None]
